FAERS Safety Report 24037768 (Version 1)
Quarter: 2024Q3

REPORT INFORMATION
  Report Type: Spontaneous
  Country: US (occurrence: US)
  Receive Date: 20240702
  Receipt Date: 20240702
  Transmission Date: 20241017
  Serious: No
  Sender: RANBAXY
  Company Number: US-MLMSERVICE-20160603-0310050-1

PATIENT
  Sex: Female

DRUGS (2)
  1. ISOTRETINOIN [Suspect]
     Active Substance: ISOTRETINOIN
     Indication: Acne cystic
     Dosage: 10 MG, QD
     Route: 065
  2. ISOTRETINOIN [Suspect]
     Active Substance: ISOTRETINOIN
     Indication: Acne cystic
     Dosage: DOSE INCREASED SLOWLY OVER 4MONTHS TO 40MG/DAY AND AFTER 9 MONTHS CUMULATIVE DOSE 120MG/KG
     Route: 065

REACTIONS (2)
  - Erythema [Unknown]
  - Dry skin [Unknown]
